FAERS Safety Report 11857752 (Version 1)
Quarter: 2015Q4

REPORT INFORMATION
  Report Type: Spontaneous
  Country: US (occurrence: None)
  Receive Date: 20151221
  Receipt Date: 20151221
  Transmission Date: 20160305
  Serious: Yes (Disabling, Other)
  Sender: FDA-Public Use
  Company Number: None

PATIENT
  Age: 24 Year
  Sex: Female
  Weight: 56.7 kg

DRUGS (6)
  1. SHORT ACTING INSULIN [Concomitant]
     Active Substance: INSULIN NOS
  2. VITAMIN C [Concomitant]
     Active Substance: ASCORBIC ACID
  3. LL INSULIN [Concomitant]
  4. VYVANSE [Suspect]
     Active Substance: LISDEXAMFETAMINE DIMESYLATE
     Indication: ATTENTION DEFICIT/HYPERACTIVITY DISORDER
     Route: 048
     Dates: start: 20151124, end: 20151218
  5. BLOOD SUGAR METER [Concomitant]
  6. MAGNESIUM [Concomitant]
     Active Substance: MAGNESIUM

REACTIONS (7)
  - Neck pain [None]
  - Pain [None]
  - Arthralgia [None]
  - Product substitution issue [None]
  - Back pain [None]
  - Impaired work ability [None]
  - Musculoskeletal pain [None]

NARRATIVE: CASE EVENT DATE: 20151218
